FAERS Safety Report 5710239-0 (Version None)
Quarter: 2008Q2

REPORT INFORMATION
  Report Type: 
  Country: None (occurrence: None)
  Receive Date: 20080418
  Receipt Date: 20080408
  Transmission Date: 20081010
  Serious: Yes (Other)
  Sender: FDA-Public Use
  Company Number: PFIZER INC-2008014123

PATIENT
  Sex: Female
  Weight: 58.5 kg

DRUGS (16)
  1. NEURONTIN [Suspect]
     Indication: MOOD SWINGS
  2. NEURONTIN [Suspect]
     Indication: BACK PAIN
  3. NEURONTIN [Suspect]
     Indication: NEURALGIA
  4. MONTELUKAST SODIUM [Concomitant]
  5. POTASSIUM CHLORIDE [Concomitant]
  6. METHADONE HCL [Concomitant]
  7. LIDODERM [Concomitant]
  8. TRAZODONE HCL [Concomitant]
  9. LOVASTATIN [Concomitant]
  10. ADVAIR HFA [Concomitant]
  11. VALSARTAN [Concomitant]
  12. LEXAPRO [Concomitant]
  13. ARICEPT [Concomitant]
  14. ATIVAN [Concomitant]
  15. ROZEREM [Concomitant]
  16. PREMPRO [Concomitant]

REACTIONS (7)
  - CERVICAL SPINAL STENOSIS [None]
  - CONVULSION [None]
  - DRUG INEFFECTIVE [None]
  - MENTAL IMPAIRMENT [None]
  - NERVE INJURY [None]
  - PAIN [None]
  - PARKINSON'S DISEASE [None]
